FAERS Safety Report 7773199-7 (Version None)
Quarter: 2011Q3

REPORT INFORMATION
  Report Type: 
  Country: None (occurrence: None)
  Receive Date: 20110922
  Receipt Date: 20110913
  Transmission Date: 20111222
  Serious: Yes (Other)
  Sender: FDA-Public Use
  Company Number: US-ASTRAZENECA-2011SE54342

PATIENT
  Age: 67 Year
  Sex: Female

DRUGS (1)
  1. SEROQUEL [Suspect]
     Indication: BIPOLAR DISORDER
     Route: 048

REACTIONS (8)
  - GLAUCOMA [None]
  - UPPER LIMB FRACTURE [None]
  - WRIST FRACTURE [None]
  - ROAD TRAFFIC ACCIDENT [None]
  - RIB FRACTURE [None]
  - FALL [None]
  - LOWER LIMB FRACTURE [None]
  - FOOT FRACTURE [None]
